FAERS Safety Report 8915794 (Version 1)
Quarter: 2012Q4

REPORT INFORMATION
  Report Type: 
  Country: CL (occurrence: CL)
  Receive Date: 20121119
  Receipt Date: 20121119
  Transmission Date: 20130627
  Serious: Yes (Hospitalization)
  Sender: FDA-Public Use
  Company Number: CL-MYLANLABS-2012S1023173

PATIENT
  Age: 2 Month
  Sex: Male

DRUGS (4)
  1. PROPRANOLOL [Suspect]
     Indication: ACCIDENTAL OVERDOSE
     Dosage: 20 mg/kg overdose
     Route: 048
  2. PROPRANOLOL [Suspect]
     Indication: HAEMANGIOMA
     Dosage: 20 mg/kg overdose
     Route: 048
  3. PROPRANOLOL [Suspect]
     Indication: ACCIDENTAL OVERDOSE
     Dosage: 2 mg/kg daily in two divided doses
     Route: 048
  4. PROPRANOLOL [Suspect]
     Indication: HAEMANGIOMA
     Dosage: 2 mg/kg daily in two divided doses
     Route: 048

REACTIONS (4)
  - Accidental overdose [Unknown]
  - Restlessness [Unknown]
  - Euphoric mood [Unknown]
  - Insomnia [Unknown]
